FAERS Safety Report 7548468-6 (Version None)
Quarter: 2011Q2

REPORT INFORMATION
  Report Type: 
  Country: None (occurrence: None)
  Receive Date: 20110615
  Receipt Date: 20110606
  Transmission Date: 20111010
  Serious: Yes (Other)
  Sender: FDA-Public Use
  Company Number: US-AMGEN-USASP2011024131

PATIENT
  Age: 60 Year
  Sex: Female
  Weight: 81.179 kg

DRUGS (3)
  1. ENBREL [Suspect]
     Indication: PSORIATIC ARTHROPATHY
     Dosage: 50 MG, QWK
     Dates: start: 20080227, end: 20101001
  2. ENBREL [Suspect]
     Indication: PSORIASIS
  3. ENBREL [Suspect]
     Indication: RHEUMATOID ARTHRITIS

REACTIONS (7)
  - PHARYNGITIS STREPTOCOCCAL [None]
  - PNEUMONIA [None]
  - FOOT DEFORMITY [None]
  - STAPHYLOCOCCAL INFECTION [None]
  - PLEURISY [None]
  - PSORIATIC ARTHROPATHY [None]
  - PSORIASIS [None]
